FAERS Safety Report 9745057 (Version 1)
Quarter: 2013Q4

REPORT INFORMATION
  Report Type: Spontaneous
  Country: DE (occurrence: DE)
  Receive Date: 20131211
  Receipt Date: 20131211
  Transmission Date: 20140711
  Serious: Yes (Other)
  Sender: FDA-Public Use
  Company Number: DE-JNJFOC-20131202190

PATIENT
  Sex: 0

DRUGS (10)
  1. IBUPROFEN [Suspect]
     Indication: PROCEDURAL PAIN
     Route: 065
  2. MIDAZOLAM [Concomitant]
     Indication: SEDATIVE THERAPY
     Route: 065
  3. SUFENTANIL [Concomitant]
     Indication: PRODUCT USED FOR UNKNOWN INDICATION
     Route: 065
  4. ACETAMINOPHEN [Concomitant]
     Indication: PROCEDURAL PAIN
     Route: 065
  5. METAMIZOLE [Concomitant]
     Indication: PROCEDURAL PAIN
     Route: 065
  6. CLONIDINE [Concomitant]
     Indication: PRODUCT USED FOR UNKNOWN INDICATION
     Route: 065
  7. DEXAMETHASONE [Concomitant]
     Indication: PRODUCT USED FOR UNKNOWN INDICATION
     Route: 065
  8. TRAMADOL [Concomitant]
     Indication: PROCEDURAL PAIN
     Route: 065
  9. PIRITRAMIDE [Concomitant]
     Indication: PROCEDURAL PAIN
     Route: 065
  10. GENERAL ANESTHESIA [Concomitant]
     Indication: PRODUCT USED FOR UNKNOWN INDICATION
     Route: 065

REACTIONS (3)
  - Respiratory disorder [Unknown]
  - Nausea [Unknown]
  - Drug ineffective [Unknown]
